FAERS Safety Report 9687894 (Version 3)
Quarter: 2013Q4

REPORT INFORMATION
  Report Type: Spontaneous
  Country: US (occurrence: US)
  Receive Date: 20131114
  Receipt Date: 20131129
  Transmission Date: 20140711
  Serious: Yes (Other)
  Sender: FDA-Public Use
  Company Number: US-JNJFOC-20131019501

PATIENT
  Age: 80 Year
  Sex: Female
  Weight: 63.5 kg

DRUGS (8)
  1. EXTRA STRENGTH TYLENOL CAPLETS [Suspect]
     Indication: PAIN
     Route: 048
     Dates: start: 20131008
  2. EXTRA STRENGTH TYLENOL CAPLETS [Suspect]
     Indication: PAIN
     Route: 048
  3. EXTRA STRENGTH TYLENOL CAPLETS [Suspect]
     Indication: ARTHRITIS
     Route: 048
  4. EXTRA STRENGTH TYLENOL CAPLETS [Suspect]
     Indication: ARTHRITIS
     Route: 048
     Dates: start: 20131008
  5. ASPIRIN [Concomitant]
     Indication: ISCHAEMIC HEART DISEASE PROPHYLAXIS
     Route: 065
  6. COZAAR [Concomitant]
     Indication: PRODUCT USED FOR UNKNOWN INDICATION
     Route: 065
  7. FUROSEMIDE [Concomitant]
     Indication: PRODUCT USED FOR UNKNOWN INDICATION
     Route: 065
  8. FUROSEMIDE [Concomitant]
     Indication: PRODUCT USED FOR UNKNOWN INDICATION
     Route: 065

REACTIONS (3)
  - Hallucination [Recovered/Resolved]
  - Loss of consciousness [Recovered/Resolved]
  - Overdose [Recovered/Resolved]
